FAERS Safety Report 5904303-0 (Version None)
Quarter: 2008Q3

REPORT INFORMATION
  Report Type: 
  Country: None (occurrence: None)
  Receive Date: 20080909
  Receipt Date: 20080418
  Transmission Date: 20090109
  Serious: Yes (Hospitalization)
  Sender: FDA-Public Use
  Company Number: 163-20785-08031639

PATIENT
  Age: 79 Year
  Sex: Female

DRUGS (12)
  1. THALOMID [Suspect]
     Indication: MULTIPLE MYELOMA
     Dosage: 50-100MG, ORAL
     Route: 048
     Dates: start: 20071115, end: 20071217
  2. DECADRON [Concomitant]
  3. ASPIRIN [Concomitant]
  4. ATENOLOL [Concomitant]
  5. CALCIUM WITH VITAMIN D (CALCIUM WITH VITAMIN D) [Concomitant]
  6. FERROUS SULFATE TAB [Concomitant]
  7. MAXIDE (TRIAMTERENE) [Concomitant]
  8. NIFEDIPINE [Concomitant]
  9. OXYCODONE HCL [Concomitant]
  10. CALTRATE (CALCIUM CARBONATE) [Concomitant]
  11. FOSAMAX [Concomitant]
  12. MOTRIN [Concomitant]

REACTIONS (5)
  - ASTHENIA [None]
  - DIZZINESS [None]
  - DRUG ADMINISTRATION ERROR [None]
  - HAEMOGLOBIN DECREASED [None]
  - WHITE BLOOD CELL COUNT DECREASED [None]
